FAERS Safety Report 11112422 (Version 1)
Quarter: 2015Q2

REPORT INFORMATION
  Report Type: Report from Study
  Country: US (occurrence: None)
  Receive Date: 20150512
  Receipt Date: 20150512
  Transmission Date: 20150821
  Serious: Yes (Hospitalization)
  Sender: FDA-Public Use
  Company Number: 2015AP008893

PATIENT
  Age: 57 Year
  Sex: Female
  Weight: 81 kg

DRUGS (15)
  1. VITAMIN B12? (CYANOCOBALAMIN) [Concomitant]
  2. MAGNESIUM (MAGNESIUM) [Concomitant]
     Active Substance: MAGNESIUM
  3. CALTRATE + D?/00944201/ (CALCIUM CARBONATE, COLECALCIFEROL) [Concomitant]
  4. MIRALAX?/00754501/ (MACROGOL) [Concomitant]
  5. FERRIPROX [Suspect]
     Active Substance: DEFERIPRONE
     Indication: HAEMOCHROMATOSIS
     Route: 048
     Dates: start: 20141126
  6. ARIMIDEX [Concomitant]
     Active Substance: ANASTROZOLE
  7. LANSOPRAZOLE (LANSOPRAZOLE) [Concomitant]
     Active Substance: LANSOPRAZOLE
  8. FERRIPROX [Suspect]
     Active Substance: DEFERIPRONE
     Indication: SICKLE CELL ANAEMIA
     Route: 048
     Dates: start: 20141126
  9. AMLODIPINE [Concomitant]
     Active Substance: AMLODIPINE BESYLATE
  10. METOPROLOL [Concomitant]
     Active Substance: METOPROLOL
  11. ZYRTEC [Concomitant]
     Active Substance: CETIRIZINE HYDROCHLORIDE
  12. FOLIC ACID (FOLIC ACID) [Concomitant]
     Active Substance: FOLIC ACID
  13. SODIUM BICARBONATE (SODIUM BICARBONATE) [Concomitant]
  14. DOCUSATE SODIUM (DOCUSATE SODIUM) [Concomitant]
     Active Substance: DOCUSATE SODIUM
  15. LORAZEPAM (LORAZEPAM) [Concomitant]
     Active Substance: LORAZEPAM

REACTIONS (2)
  - Weight decreased [None]
  - Sickle cell anaemia with crisis [None]

NARRATIVE: CASE EVENT DATE: 20150426
